FAERS Safety Report 9376902 (Version 1)
Quarter: 2013Q3

REPORT INFORMATION
  Report Type: Spontaneous
  Country: US (occurrence: US)
  Receive Date: 20130701
  Receipt Date: 20130701
  Transmission Date: 20140515
  Serious: Yes (Other)
  Sender: FDA-Public Use
  Company Number: US-SANOFI-AVENTIS-2013SA064940

PATIENT
  Age: 84 Year
  Sex: Female

DRUGS (4)
  1. LANTUS [Suspect]
     Dosage: TAKEN FROM-YEARS AGO
     Route: 065
  2. LANTUS SOLOSTAR [Suspect]
     Indication: TYPE 2 DIABETES MELLITUS
     Dosage: TAKEN FROM- 10 YEARS DOSE:30 UNIT(S)
     Route: 065
  3. SOLOSTAR [Suspect]
     Indication: TYPE 2 DIABETES MELLITUS
     Dosage: TAKEN FROM- 10 YEARS
  4. APIDRA [Suspect]
     Route: 065

REACTIONS (4)
  - Chronic obstructive pulmonary disease [Unknown]
  - Cardiac failure congestive [Unknown]
  - Renal disorder [Unknown]
  - Osteoporosis [Unknown]
